FAERS Safety Report 6419330-7 (Version None)
Quarter: 2009Q4

REPORT INFORMATION
  Report Type: 
  Country: None (occurrence: None)
  Receive Date: 20091029
  Receipt Date: 20091028
  Transmission Date: 20100525
  Serious: Yes (Death)
  Sender: FDA-Public Use
  Company Number: JP-ELI_LILLY_AND_COMPANY-JP200910006976

PATIENT
  Age: 50 Year
  Sex: Male

DRUGS (2)
  1. HUMALOG MIX 75/25 [Suspect]
     Indication: DIABETES MELLITUS
     Dosage: UNK, 2/D
     Route: 058
  2. HUMALOG MIX 75/25 [Suspect]
     Dosage: 600 U, DAILY (1/D)
     Route: 058
     Dates: start: 20091026

REACTIONS (2)
  - DEATH [None]
  - OVERDOSE [None]
